FAERS Safety Report 5188592-9 (Version None)
Quarter: 2006Q4

REPORT INFORMATION
  Report Type: 
  Country: None (occurrence: None)
  Receive Date: 20061221
  Receipt Date: 20061215
  Transmission Date: 20070319
  Serious: Yes (Hospitalization)
  Sender: FDA-Public Use
  Company Number: US-ELI_LILLY_AND_COMPANY-US200612003184

PATIENT
  Age: 49 Year
  Sex: Male
  Weight: 97.505 kg

DRUGS (9)
  1. HUMALOG [Suspect]
  2. METFORMIN [Concomitant]
  3. AMARYL [Concomitant]
  4. NORVASC [Concomitant]
     Dates: end: 20061101
  5. VERAPAMIL [Concomitant]
     Dates: start: 20061101, end: 20061117
  6. POTASSIUM ACETATE [Concomitant]
  7. ALTACE [Concomitant]
  8. CHROMIUM PICOLINATE [Concomitant]
  9. CYMBALTA [Suspect]

REACTIONS (10)
  - ARRHYTHMIA [None]
  - ARTERIOSCLEROSIS [None]
  - BLOOD GLUCOSE DECREASED [None]
  - FALL [None]
  - LOSS OF CONSCIOUSNESS [None]
  - PALPITATIONS [None]
  - TACHYCARDIA [None]
  - THERAPEUTIC RESPONSE UNEXPECTED [None]
  - WEIGHT DECREASED [None]
  - WOLFF-PARKINSON-WHITE SYNDROME [None]
